FAERS Safety Report 7860224 (Version 3)
Quarter: 2014Q3

REPORT INFORMATION
  Report Type: Report from Study
  Country: US (occurrence: US)
  Receive Date: 20110317
  Receipt Date: 20140725
  Transmission Date: 20150326
  Serious: Yes (Other)
  Sender: FDA-Public Use
  Company Number: US-ROCHE-764232

PATIENT

DRUGS (1)
  1. CAPECITABINE [Suspect]
     Active Substance: CAPECITABINE
     Route: 048

REACTIONS (6)
  - Infection [Unknown]
  - Chest pain [Unknown]
  - Blood bilirubin increased [Unknown]
  - Bile duct obstruction [Unknown]
  - Musculoskeletal pain [Unknown]
  - Colitis [Unknown]
